FAERS Safety Report 12982401 (Version 1)
Quarter: 2016Q4

REPORT INFORMATION
  Report Type: Spontaneous
  Country: US (occurrence: US)
  Receive Date: 20161128
  Receipt Date: 20161128
  Transmission Date: 20170207
  Serious: Yes (Other)
  Sender: FDA-Public Use
  Company Number: None

PATIENT
  Age: 29 Year
  Sex: Female
  Weight: 86.26 kg

DRUGS (3)
  1. ACETAMINOPHEN. [Concomitant]
     Active Substance: ACETAMINOPHEN
  2. NEXPLANON [Suspect]
     Active Substance: ETONOGESTREL
  3. IBUPROPHEN [Concomitant]
     Active Substance: IBUPROFEN

REACTIONS (4)
  - Pain [None]
  - Implant site cellulitis [None]
  - Hypoaesthesia [None]
  - Implant site reaction [None]

NARRATIVE: CASE EVENT DATE: 20161122
